FAERS Safety Report 19895184 (Version 1)
Quarter: 2021Q3

REPORT INFORMATION
  Report Type: Spontaneous
  Country: US (occurrence: US)
  Receive Date: 20210929
  Receipt Date: 20210929
  Transmission Date: 20211014
  Serious: Yes (Death, Other)
  Sender: FDA-Public Use
  Company Number: US-GLAXOSMITHKLINE-US2021202874

PATIENT
  Sex: Male

DRUGS (2)
  1. VENTOLIN HFA [Suspect]
     Active Substance: ALBUTEROL SULFATE
     Indication: WHEEZING
     Dosage: 2 PUFF(S), 6D, EVERY 4 HOURS AS NEEDED
     Route: 055
     Dates: start: 202012
  2. INCRUSE ELLIPTA [Suspect]
     Active Substance: UMECLIDINIUM BROMIDE
     Indication: WHEEZING
     Dosage: 1 PUFF(S), QD, 1 INHATION BY MOUTH EVERY 24 HOUR
     Route: 055
     Dates: start: 202012

REACTIONS (1)
  - Bladder cancer [Fatal]
